FAERS Safety Report 15556540 (Version 1)
Quarter: 2018Q4

REPORT INFORMATION
  Report Type: Spontaneous
  Country: BR (occurrence: BR)
  Receive Date: 20181026
  Receipt Date: 20181026
  Transmission Date: 20190205
  Serious: Yes (Other)
  Sender: FDA-Public Use
  Company Number: BR-PFIZER INC-2018403768

PATIENT
  Sex: Female

DRUGS (3)
  1. LORAX [Suspect]
     Active Substance: LORAZEPAM
     Indication: CARDIAC DISORDER
     Dosage: 2 MG, UNK
     Dates: start: 2000
  2. LORAX [Suspect]
     Active Substance: LORAZEPAM
     Dosage: TWO TABLETS AND MORE HALF A TABLET
  3. LORAX [Suspect]
     Active Substance: LORAZEPAM
     Indication: INSOMNIA
     Dosage: 1 MG, UNK
     Dates: start: 2000

REACTIONS (18)
  - Drug ineffective [Unknown]
  - Spinal disorder [Unknown]
  - Peripheral coldness [Unknown]
  - Product use issue [Unknown]
  - Pain in extremity [Unknown]
  - Speech disorder [Unknown]
  - Cardiac disorder [Unknown]
  - Dizziness [Unknown]
  - Feeling abnormal [Unknown]
  - Nervous system disorder [Unknown]
  - Gait disturbance [Unknown]
  - Insomnia [Unknown]
  - Stress [Not Recovered/Not Resolved]
  - Arterial disorder [Unknown]
  - Suicidal ideation [Unknown]
  - Nervousness [Unknown]
  - Tendon disorder [Unknown]
  - Mental disorder [Not Recovered/Not Resolved]

NARRATIVE: CASE EVENT DATE: 2000
